FAERS Safety Report 7715851-5 (Version None)
Quarter: 2011Q3

REPORT INFORMATION
  Report Type: 
  Country: None (occurrence: None)
  Receive Date: 20110829
  Receipt Date: 20110829
  Transmission Date: 20111222
  Serious: Yes (Hospitalization)
  Sender: FDA-Public Use
  Company Number: None

PATIENT
  Age: 68 Year
  Weight: 111.13 kg

DRUGS (12)
  1. SENNA-MINT WAF [Concomitant]
     Route: 048
  2. TYNELOL [Concomitant]
     Route: 048
  3. REVLIMID [Suspect]
     Indication: NON-HODGKIN'S LYMPHOMA
     Dosage: 20
     Route: 048
     Dates: start: 20110531, end: 20110607
  4. PROTONIX [Concomitant]
     Route: 048
  5. PREDNISONE [Concomitant]
     Route: 048
  6. DILAUDID [Concomitant]
     Route: 042
  7. NOVOLOG [Concomitant]
     Route: 058
  8. RITUX [Concomitant]
     Indication: NON-HODGKIN'S LYMPHOMA
     Dosage: 800
     Route: 041
  9. ZOFRAN [Concomitant]
     Route: 042
  10. DOCUSATE [Concomitant]
     Route: 048
  11. NORCO [Concomitant]
     Route: 048
  12. BENADRYL [Concomitant]
     Route: 048

REACTIONS (8)
  - OEDEMA PERIPHERAL [None]
  - PALPITATIONS [None]
  - BONE PAIN [None]
  - PLEURAL EFFUSION [None]
  - DYSPNOEA [None]
  - BLISTER [None]
  - RASH MACULO-PAPULAR [None]
  - ERYTHEMA [None]
